FAERS Safety Report 7168095-2 (Version None)
Quarter: 2010Q4

REPORT INFORMATION
  Report Type: 
  Country: None (occurrence: None)
  Receive Date: 20101216
  Receipt Date: 20101214
  Transmission Date: 20110411
  Serious: Yes (Other)
  Sender: FDA-Public Use
  Company Number: US-PFIZER INC-2010171950

PATIENT
  Sex: Female
  Weight: 63.039 kg

DRUGS (3)
  1. XANAX [Suspect]
     Dosage: 1 MG, 1X/DAY
     Route: 048
     Dates: start: 20100608
  2. ASPIRIN [Concomitant]
     Dosage: 81 MG, 1X/DAY
  3. MILK OF MAGNESIA [Concomitant]
     Dosage: 500 MG, 1X/DAY

REACTIONS (2)
  - GASTROINTESTINAL DISORDER [None]
  - MUSCLE TIGHTNESS [None]
